FAERS Safety Report 7544110-9 (Version None)
Quarter: 2011Q2

REPORT INFORMATION
  Report Type: 
  Country: None (occurrence: None)
  Receive Date: 20110613
  Receipt Date: 20051219
  Transmission Date: 20111010
  Serious: Yes (Other)
  Sender: FDA-Public Use
  Company Number: PHHO2005CA13703

PATIENT
  Sex: Male

DRUGS (8)
  1. METOPROLOL TARTRATE [Concomitant]
  2. DIGOXIN [Concomitant]
  3. SANDOSTATIN LAR [Suspect]
     Indication: CARCINOID TUMOUR
     Dosage: 20 MG, EVERY 4 WEEKS
     Dates: start: 20050505
  4. LASIX [Concomitant]
  5. ZOCOR [Concomitant]
  6. ALLOPURINOL [Concomitant]
  7. VITALUX [Concomitant]
  8. ASPIRIN [Concomitant]

REACTIONS (2)
  - HEART RATE DECREASED [None]
  - NEOPLASM MALIGNANT [None]
